FAERS Safety Report 4869149-3 (Version None)
Quarter: 2005Q4

REPORT INFORMATION
  Report Type: 
  Country: None (occurrence: None)
  Receive Date: 20051228
  Receipt Date: 20051228
  Transmission Date: 20060501
  Serious: No
  Sender: FDA-Public Use
  Company Number: None

PATIENT
  Age: 50 Year
  Sex: Female
  Weight: 70.3075 kg

DRUGS (1)
  1. HYDROCODONE ACETAMINOPHEN [Suspect]
     Dosage: 1-4 PILLS DAILY

REACTIONS (4)
  - DRUG INEFFECTIVE [None]
  - EYE ALLERGY [None]
  - EYE DISCHARGE [None]
  - EYE INFECTION [None]
